FAERS Safety Report 7328914-3 (Version None)
Quarter: 2011Q1

REPORT INFORMATION
  Report Type: 
  Country: None (occurrence: None)
  Receive Date: 20110303
  Receipt Date: 20110225
  Transmission Date: 20110831
  Serious: Yes (Hospitalization, Disabling, Other)
  Sender: FDA-Public Use
  Company Number: US-JNJFOC-20080300717

PATIENT
  Sex: Male
  Weight: 79.38 kg

DRUGS (13)
  1. DURAGESIC-50 [Suspect]
     Route: 062
  2. DURAGESIC-50 [Suspect]
     Route: 062
  3. DURAGESIC-50 [Suspect]
     Route: 062
  4. DURAGESIC-50 [Suspect]
     Indication: PAIN
     Route: 062
  5. FENTANYL [Suspect]
     Indication: PAIN
     Route: 062
  6. STEROIDS [Concomitant]
     Route: 048
  7. INHALERS [Concomitant]
     Route: 065
  8. TRAMADOL HCL [Concomitant]
     Route: 048
  9. UNSPECIFIED PRODUCT [Suspect]
     Indication: ILL-DEFINED DISORDER
     Route: 065
  10. DEMEROL [Suspect]
     Indication: PAIN
     Route: 065
  11. BENZODIAZEPINES NOS [Suspect]
     Indication: PRODUCT USED FOR UNKNOWN INDICATION
     Route: 065
  12. DURAGESIC-50 [Suspect]
     Route: 062
  13. KLONOPIN [Concomitant]
     Route: 065

REACTIONS (12)
  - LUNG DISORDER [None]
  - AMNESIA [None]
  - GASTRIC DISORDER [None]
  - RESPIRATORY ARREST [None]
  - DISORIENTATION [None]
  - HEADACHE [None]
  - BRAIN INJURY [None]
  - BLOOD GLUCOSE INCREASED [None]
  - DYSPHEMIA [None]
  - BALANCE DISORDER [None]
  - OVERDOSE [None]
  - COMA [None]
